FAERS Safety Report 8008623-8 (Version None)
Quarter: 2011Q4

REPORT INFORMATION
  Report Type: 
  Country: None (occurrence: None)
  Receive Date: 20111221
  Receipt Date: 20111215
  Transmission Date: 20120403
  Serious: Yes (Disabling, Other)
  Sender: FDA-Public Use
  Company Number: AUR-APL-2011-05889

PATIENT
  Age: 84 Year
  Sex: Female
  Weight: 49.8957 kg

DRUGS (6)
  1. CALCIUM CARBONATE [Concomitant]
  2. ALENDRONIC ACID (ALENDRONIC ACID) [Suspect]
     Indication: OSTEOPOROSIS
     Dosage: (70 MG,1 WK),ORAL
     Route: 048
     Dates: start: 20111010, end: 20111114
  3. ALLOPURINOL [Concomitant]
  4. DILTIAZEM [Concomitant]
  5. VITAMIN D [Concomitant]
  6. VITAMIN B12 [Concomitant]

REACTIONS (6)
  - MUSCULOSKELETAL STIFFNESS [None]
  - HIP FRACTURE [None]
  - PAIN IN EXTREMITY [None]
  - BACK PAIN [None]
  - BONE PAIN [None]
  - ARTHRALGIA [None]
